FAERS Safety Report 4320434-3 (Version None)
Quarter: 2004Q1

REPORT INFORMATION
  Report Type: 
  Country: None (occurrence: None)
  Receive Date: 20040322
  Receipt Date: 20040109
  Transmission Date: 20041129
  Serious: Yes (Life-Threatening, Hospitalization)
  Sender: FDA-Public Use
  Company Number: PHBS2004JP00764

PATIENT
  Age: 37 Year
  Sex: Female
  Weight: 72 kg

DRUGS (4)
  1. SLOW-K [Suspect]
     Indication: HYPOKALAEMIA
     Dosage: 600 MG/DAY
     Route: 048
     Dates: start: 20030901, end: 20031113
  2. SLOW-K [Suspect]
     Dosage: 1.2 G/DAY
     Route: 048
     Dates: start: 20031114, end: 20031213
  3. SLOW-K [Suspect]
     Dosage: 1.8 G/DAY
     Route: 048
     Dates: start: 20031214
  4. SLOW-K [Suspect]
     Dosage: 30 DF, ONCE/SINGLE
     Route: 048
     Dates: start: 20031225, end: 20031225

REACTIONS (4)
  - BLEPHAROSPASM [None]
  - HYPERKALAEMIA [None]
  - LOSS OF CONSCIOUSNESS [None]
  - OVERDOSE [None]
